FAERS Safety Report 15556729 (Version 1)
Quarter: 2018Q4

REPORT INFORMATION
  Report Type: Spontaneous
  Country: HR (occurrence: HR)
  Receive Date: 20181026
  Receipt Date: 20181026
  Transmission Date: 20190205
  Serious: Yes (Other)
  Sender: FDA-Public Use
  Company Number: HR-TEVA-2018-HR-969408

PATIENT
  Age: 11 Year
  Sex: Female
  Weight: 77 kg

DRUGS (5)
  1. SEROXAT [Suspect]
     Active Substance: PAROXETINE HYDROCHLORIDE
     Dosage: 100 MILLIGRAM DAILY;
     Route: 048
     Dates: start: 20180817, end: 20180817
  2. ARIPIPRAZOLE. [Suspect]
     Active Substance: ARIPIPRAZOLE
     Dosage: 75 MILLIGRAM DAILY;
     Route: 048
     Dates: start: 20180817, end: 20180817
  3. DIAZEPAM. [Suspect]
     Active Substance: DIAZEPAM
     Dosage: 25 MILLIGRAM DAILY;
     Route: 048
     Dates: start: 20180817, end: 20180817
  4. LEPONEX [Suspect]
     Active Substance: CLOZAPINE
     Dosage: 500 MILLIGRAM DAILY;
     Route: 048
     Dates: start: 20180817, end: 20180817
  5. EMANERA [Suspect]
     Active Substance: ESOMEPRAZOLE MAGNESIUM
     Dosage: 200 MILLIGRAM DAILY;
     Route: 048
     Dates: start: 20180817, end: 20180817

REACTIONS (4)
  - Vomiting [Unknown]
  - Suicide attempt [Unknown]
  - Tachycardia [Unknown]
  - Somnolence [Unknown]

NARRATIVE: CASE EVENT DATE: 20180817
